FAERS Safety Report 16479756 (Version 5)
Quarter: 2019Q3

REPORT INFORMATION
  Report Type: Report from Study
  Country: DE (occurrence: DE)
  Receive Date: 20190626
  Receipt Date: 20190905
  Transmission Date: 20191004
  Serious: Yes (Hospitalization)
  Sender: FDA-Public Use
  Company Number: DE-CELGENEUS-DEU-20190608826

PATIENT
  Age: 8 Decade
  Sex: Male
  Weight: 82 kg

DRUGS (14)
  1. TAVOR EXPIDET [Concomitant]
     Active Substance: LORAZEPAM
     Indication: TUMOUR PAIN
     Route: 048
  2. NOVALGIN [Concomitant]
     Indication: TUMOUR PAIN
     Route: 048
     Dates: start: 20190110
  3. ORAMORPH [Concomitant]
     Active Substance: MORPHINE SULFATE
     Indication: TUMOUR PAIN
     Route: 048
  4. MST [Concomitant]
     Indication: TUMOUR PAIN
     Dosage: 20 MILLIGRAM
     Route: 048
     Dates: start: 20190409
  5. NEUROCIL [Concomitant]
     Indication: TUMOUR PAIN
     Dosage: 59994 UNKNOWN
     Route: 048
  6. ABRAXANE [Suspect]
     Active Substance: PACLITAXEL
     Indication: NON-SMALL CELL LUNG CANCER
     Dosage: 100 MILLIGRAM/SQ. METER
     Route: 041
     Dates: start: 20190131
  7. CARBOPLATIN. [Suspect]
     Active Substance: CARBOPLATIN
     Indication: NON-SMALL CELL LUNG CANCER
     Dosage: 6 MILLIGRAM*MIN/ML
     Route: 041
     Dates: start: 20190207, end: 20190321
  8. CANDECOR [Concomitant]
     Active Substance: CANDESARTAN CILEXETIL
     Indication: HYPERTENSION
     Dosage: 15 MILLIGRAM
     Route: 048
  9. PARACODIN [Concomitant]
     Indication: PROPHYLAXIS
     Route: 048
     Dates: start: 20190214
  10. ABRAXANE [Suspect]
     Active Substance: PACLITAXEL
     Route: 041
     Dates: start: 20190307, end: 20190321
  11. ABRAXANE [Suspect]
     Active Substance: PACLITAXEL
     Route: 041
     Dates: start: 2019
  12. BISOPROLOL [Concomitant]
     Active Substance: BISOPROLOL
     Indication: HYPERTENSION
     Dosage: 5 MILLIGRAM
     Route: 048
  13. LAXOBERAL [Concomitant]
     Active Substance: SODIUM PICOSULFATE
     Indication: PROPHYLAXIS
     Route: 048
  14. ABRAXANE [Suspect]
     Active Substance: PACLITAXEL
     Dosage: 100 MILLIGRAM/SQ. METER
     Route: 041
     Dates: start: 20190221

REACTIONS (4)
  - Nausea [Recovered/Resolved]
  - General physical health deterioration [Recovered/Resolved]
  - General physical health deterioration [Recovered/Resolved]
  - Leukopenia [Recovered/Resolved]

NARRATIVE: CASE EVENT DATE: 20190224
